FAERS Safety Report 9839552 (Version 2)
Quarter: 2014Q1

REPORT INFORMATION
  Report Type: Spontaneous
  Country: JP (occurrence: JP)
  Receive Date: 20140124
  Receipt Date: 20140205
  Transmission Date: 20141002
  Serious: Yes (Other)
  Sender: FDA-Public Use
  Company Number: JP-009507513-1401JPN010281

PATIENT
  Age: 61 Year
  Sex: Female

DRUGS (6)
  1. BONALON [Suspect]
     Indication: OSTEOPOROSIS
     Dosage: 35 MG, QW
     Route: 048
     Dates: start: 20100831
  2. PREDNISOLONE [Concomitant]
     Dosage: 5 MG/DAY
     Route: 048
  3. MEVALOTIN [Concomitant]
     Dosage: 40 MG/DAY
     Route: 048
  4. ITRIZOLE [Concomitant]
  5. THEOPHYLLINE [Concomitant]
     Dosage: 200 MG/DAY
     Route: 048
  6. PULMICORT [Concomitant]
     Dosage: 400 MICROGRAM/DAY INH
     Route: 055

REACTIONS (1)
  - Atypical fracture [Not Recovered/Not Resolved]
